FAERS Safety Report 14801003 (Version 1)
Quarter: 2018Q2

REPORT INFORMATION
  Report Type: Spontaneous
  Country: US (occurrence: US)
  Receive Date: 20180424
  Receipt Date: 20180424
  Transmission Date: 20180711
  Serious: No
  Sender: FDA-Public Use
  Company Number: US-AMNEAL PHARMACEUTICALS-2017AMN00996

PATIENT
  Age: 60 Year
  Sex: Male
  Weight: 112.47 kg

DRUGS (1)
  1. SILDENAFIL. [Suspect]
     Active Substance: SILDENAFIL
     Indication: PROSTATIC OPERATION
     Dosage: 1 TABLETS, 1X/DAY (ONLY FOR 2 DAYS)
     Route: 048
     Dates: start: 20171014, end: 20171028

REACTIONS (4)
  - Pain in extremity [Unknown]
  - Myalgia [Unknown]
  - Arthralgia [Recovered/Resolved]
  - Chest pain [Recovered/Resolved]

NARRATIVE: CASE EVENT DATE: 20171028
